FAERS Safety Report 7960249-8 (Version None)
Quarter: 2011Q4

REPORT INFORMATION
  Report Type: 
  Country: None (occurrence: None)
  Receive Date: 20111206
  Receipt Date: 20111128
  Transmission Date: 20120403
  Serious: Yes (Hospitalization)
  Sender: FDA-Public Use
  Company Number: US-ACTELION-A-US2011-57626

PATIENT

DRUGS (2)
  1. CORTICOSTEROID NOS [Suspect]
  2. TRACLEER [Suspect]
     Indication: PULMONARY ARTERIAL HYPERTENSION
     Dosage: UNK
     Route: 048
     Dates: start: 20111006

REACTIONS (2)
  - PULMONARY OEDEMA [None]
  - BLOOD GLUCOSE ABNORMAL [None]
